FAERS Safety Report 8687382 (Version 2)
Quarter: 2012Q4

REPORT INFORMATION
  Report Type: 
  Country: JP (occurrence: JP)
  Receive Date: 20120727
  Receipt Date: 20121003
  Transmission Date: 20130627
  Serious: Yes (Other)
  Sender: FDA-Public Use
  Company Number: JP-ELI_LILLY_AND_COMPANY-JP201207005235

PATIENT
  Age: 42 None
  Sex: Female
  Weight: 46.7 kg

DRUGS (3)
  1. HUMALOG LISPRO [Suspect]
     Indication: TYPE 1 DIABETES MELLITUS
     Dosage: UNK UNK, tid
     Route: 058
     Dates: start: 20120703, end: 20120714
  2. HUMALOG LISPRO [Suspect]
     Indication: TYPE 1 DIABETES MELLITUS
     Dosage: UNK
     Route: 058
     Dates: start: 2009
  3. LEVEMIR [Concomitant]
     Indication: TYPE 1 DIABETES MELLITUS
     Dosage: UNK, bid
     Route: 058
     Dates: start: 20090730

REACTIONS (2)
  - Blood glucose increased [Recovered/Resolved]
  - Diabetes mellitus inadequate control [Unknown]
